FAERS Safety Report 17686679 (Version 1)
Quarter: 2020Q2

REPORT INFORMATION
  Report Type: Spontaneous
  Country: MX (occurrence: MX)
  Receive Date: 20200420
  Receipt Date: 20200420
  Transmission Date: 20200714
  Serious: Yes (Other)
  Sender: FDA-Public Use
  Company Number: MX-ROCHE-2585297

PATIENT
  Age: 59 Year
  Sex: Male

DRUGS (4)
  1. RIVOTRIL [Suspect]
     Active Substance: CLONAZEPAM
     Indication: DEPRESSION
     Route: 065
  2. EFFEXOR [Concomitant]
     Active Substance: VENLAFAXINE HYDROCHLORIDE
  3. TRAMADOL. [Concomitant]
     Active Substance: TRAMADOL
  4. PAXIL [Concomitant]
     Active Substance: PAROXETINE HYDROCHLORIDE

REACTIONS (10)
  - Suicidal ideation [Unknown]
  - Amnesia [Unknown]
  - Agoraphobia [Unknown]
  - Reading disorder [Unknown]
  - Asthenia [Unknown]
  - Muscular weakness [Unknown]
  - Back pain [Unknown]
  - Social anxiety disorder [Unknown]
  - Suicide attempt [Unknown]
  - Mental impairment [Unknown]
